FAERS Safety Report 12627066 (Version 3)
Quarter: 2017Q4

REPORT INFORMATION
  Report Type: Report from Study
  Country: None (occurrence: US)
  Receive Date: 20160805
  Receipt Date: 20171211
  Transmission Date: 20180320
  Serious: Yes (Other)
  Sender: FDA-Public Use
  Company Number: US-ABBVIE-16K-163-1689635-00

PATIENT
  Age: 59 Year
  Sex: Female

DRUGS (16)
  1. CEPHALEXIN. [Suspect]
     Active Substance: CEPHALEXIN
     Indication: PRODUCT USED FOR UNKNOWN INDICATION
     Route: 065
  2. VITAMIN B12 [Concomitant]
     Active Substance: CYANOCOBALAMIN
     Indication: VITAMIN SUPPLEMENTATION
  3. LEVOTHYROXINE. [Concomitant]
     Active Substance: LEVOTHYROXINE
     Indication: HYPOTHYROIDISM
  4. PANTOPRAZOLE [Concomitant]
     Active Substance: PANTOPRAZOLE
     Indication: GASTROOESOPHAGEAL REFLUX DISEASE
  5. HUMIRA [Suspect]
     Active Substance: ADALIMUMAB
     Indication: PSORIASIS
     Route: 058
     Dates: start: 2010, end: 201607
  6. HUMIRA [Suspect]
     Active Substance: ADALIMUMAB
     Indication: PSORIASIS
  7. HUMIRA [Suspect]
     Active Substance: ADALIMUMAB
     Indication: PSORIATIC ARTHROPATHY
  8. TRIAMCINOLONE [Concomitant]
     Active Substance: TRIAMCINOLONE
     Indication: PSORIASIS
  9. FERROUS SULFATE. [Concomitant]
     Active Substance: FERROUS SULFATE
     Indication: IRON DEFICIENCY
  10. CLOBETASOL [Concomitant]
     Active Substance: CLOBETASOL
     Indication: PSORIASIS
  11. PRIMIDONE. [Concomitant]
     Active Substance: PRIMIDONE
     Indication: EPILEPSY
  12. VITAMIN D [Concomitant]
     Active Substance: CHOLECALCIFEROL
     Indication: VITAMIN D DEFICIENCY
  13. AREDS 2 [Concomitant]
     Active Substance: MINERALS\VITAMINS
     Indication: MACULAR DEGENERATION
  14. LIPITOR [Concomitant]
     Active Substance: ATORVASTATIN CALCIUM
     Indication: BLOOD CHOLESTEROL INCREASED
  15. PHENYTOIN. [Concomitant]
     Active Substance: PHENYTOIN
     Indication: EPILEPSY
  16. LIDEX [Concomitant]
     Active Substance: FLUOCINONIDE
     Indication: PSORIASIS

REACTIONS (38)
  - Nasal pruritus [Recovering/Resolving]
  - Blood blister [Not Recovered/Not Resolved]
  - Osteoporosis [Not Recovered/Not Resolved]
  - Influenza immunisation [Not Recovered/Not Resolved]
  - Contusion [Recovered/Resolved]
  - Psoriasis [Not Recovered/Not Resolved]
  - Drug effect delayed [Not Recovered/Not Resolved]
  - Deafness [Recovering/Resolving]
  - Bronchitis [Recovered/Resolved]
  - Arthralgia [Not Recovered/Not Resolved]
  - Nasal septum deviation [Recovered/Resolved]
  - Upper-airway cough syndrome [Recovering/Resolving]
  - Cardiomegaly [Not Recovered/Not Resolved]
  - Lymphadenopathy [Not Recovered/Not Resolved]
  - Pneumonia [Recovered/Resolved]
  - Folliculitis [Not Recovered/Not Resolved]
  - Intervertebral disc compression [Not Recovered/Not Resolved]
  - Aortic aneurysm [Not Recovered/Not Resolved]
  - Chronic sinusitis [Recovering/Resolving]
  - Nasopharyngitis [Not Recovered/Not Resolved]
  - Generalised erythema [Recovering/Resolving]
  - Nasal polyps [Recovered/Resolved]
  - Pneumonia [Not Recovered/Not Resolved]
  - Dyspnoea [Recovering/Resolving]
  - Epilepsy [Not Recovered/Not Resolved]
  - Sinus disorder [Recovering/Resolving]
  - Sleep apnoea syndrome [Not Recovered/Not Resolved]
  - Palpitations [Recovering/Resolving]
  - Road traffic accident [Recovered/Resolved]
  - Ingrowing nail [Not Recovered/Not Resolved]
  - Diplopia [Recovered/Resolved]
  - Onychoclasis [Unknown]
  - Drug effect decreased [Not Recovered/Not Resolved]
  - Aneurysm [Not Recovered/Not Resolved]
  - Skin swelling [Not Recovered/Not Resolved]
  - Sinus polyp [Recovered/Resolved]
  - Limb injury [Unknown]
  - Back pain [Not Recovered/Not Resolved]

NARRATIVE: CASE EVENT DATE: 2014
